FAERS Safety Report 6441558-0 (Version None)
Quarter: 2009Q4

REPORT INFORMATION
  Report Type: 
  Country: None (occurrence: None)
  Receive Date: 20091116
  Receipt Date: 20091105
  Transmission Date: 20100525
  Serious: Yes (Hospitalization)
  Sender: FDA-Public Use
  Company Number: FR-ASTRAZENECA-2009SE24681

PATIENT
  Age: 17590 Day
  Sex: Male

DRUGS (13)
  1. MOPRAL [Suspect]
     Route: 048
     Dates: start: 20090827
  2. BACTRIM [Suspect]
     Route: 048
     Dates: start: 20090827, end: 20090918
  3. DAFALGAN [Suspect]
     Route: 048
     Dates: start: 20090907, end: 20090921
  4. LASILIX [Suspect]
     Route: 048
     Dates: start: 20090827, end: 20090912
  5. LOXEN LP [Suspect]
     Route: 048
     Dates: start: 20090827, end: 20090907
  6. TRIATEC [Suspect]
     Route: 048
     Dates: start: 20090827
  7. SECTRAL [Suspect]
     Route: 048
     Dates: start: 20090827
  8. AMLOR [Suspect]
     Route: 048
     Dates: start: 20090907
  9. COZAAR [Suspect]
     Route: 048
     Dates: start: 20090907
  10. EUPRESSYL [Suspect]
     Route: 048
     Dates: start: 20090827
  11. CALCIDIA [Suspect]
     Route: 048
     Dates: start: 20090827
  12. CALCIPARINE [Suspect]
     Route: 058
     Dates: start: 20090821, end: 20090903
  13. LEXOMIL [Concomitant]

REACTIONS (1)
  - EOSINOPHILIA [None]
